FAERS Safety Report 25918586 (Version 1)
Quarter: 2025Q4

REPORT INFORMATION
  Report Type: Other
  Country: EU (occurrence: EU)
  Receive Date: 20251014
  Receipt Date: 20251014
  Transmission Date: 20260118
  Serious: Yes (Hospitalization)
  Sender: ZYDUS PHARM
  Company Number: None

PATIENT

DRUGS (1)
  1. SPIRONOLACTONE [Suspect]
     Active Substance: SPIRONOLACTONE
     Indication: Breast cancer
     Dosage: UNK
     Route: 048
     Dates: start: 20250823

REACTIONS (1)
  - Purpura non-thrombocytopenic [Not Recovered/Not Resolved]

NARRATIVE: CASE EVENT DATE: 20250911
